FAERS Safety Report 8928401 (Version 2)
Quarter: 2013Q1

REPORT INFORMATION
  Report Type: Spontaneous
  Country: US (occurrence: US)
  Receive Date: 20121128
  Receipt Date: 20130305
  Transmission Date: 20140127
  Serious: No
  Sender: FDA-Public Use
  Company Number: US-BIOGENIDEC-2012BI054638

PATIENT
  Sex: Female

DRUGS (2)
  1. TYSABRI [Suspect]
     Indication: MULTIPLE SCLEROSIS
     Route: 042
     Dates: start: 20071120
  2. COPAXONE [Concomitant]
     Indication: MULTIPLE SCLEROSIS
     Dates: start: 2004, end: 2007

REACTIONS (4)
  - Vertigo [Recovered/Resolved]
  - Balance disorder [Recovered/Resolved]
  - Neuralgia [Not Recovered/Not Resolved]
  - Memory impairment [Recovered/Resolved]
